FAERS Safety Report 10255471 (Version 1)
Quarter: 2014Q2

REPORT INFORMATION
  Report Type: Spontaneous
  Country: TR (occurrence: TR)
  Receive Date: 20140624
  Receipt Date: 20140624
  Transmission Date: 20141212
  Serious: Yes (Hospitalization)
  Sender: FDA-Public Use
  Company Number: PHHY2014TR075842

PATIENT
  Age: 65 Year
  Sex: Male

DRUGS (5)
  1. WARFARIN [Suspect]
  2. REPAGLINIDE [Interacting]
  3. ROSIGLITAZONE [Interacting]
  4. LOSARTAN [Suspect]
  5. ACETYLSALICYLIC ACID [Interacting]

REACTIONS (17)
  - Eye haemorrhage [Unknown]
  - Eye swelling [Unknown]
  - Eye pain [Unknown]
  - Retinal haemorrhage [Unknown]
  - Haemorrhage urinary tract [Unknown]
  - Haematuria [Unknown]
  - Ocular hyperaemia [Unknown]
  - Corneal oedema [Unknown]
  - Conjunctival oedema [Unknown]
  - Conjunctival hyperaemia [Unknown]
  - Pupillary reflex impaired [Unknown]
  - Visual acuity reduced [Unknown]
  - Pallor [Unknown]
  - Melaena [Unknown]
  - Ecchymosis [Unknown]
  - Haemorrhage [Unknown]
  - Retinal detachment [Unknown]
